FAERS Safety Report 26112386 (Version 2)
Quarter: 2025Q4

REPORT INFORMATION
  Report Type: Spontaneous
  Country: AU (occurrence: AU)
  Receive Date: 20251202
  Receipt Date: 20251203
  Transmission Date: 20260118
  Serious: Yes (Hospitalization, Other)
  Sender: PFIZER
  Company Number: AU-PFIZER INC-PV202500138251

PATIENT
  Age: 70 Year
  Sex: Female

DRUGS (5)
  1. PAXLOVID [Interacting]
     Active Substance: NIRMATRELVIR\RITONAVIR
     Indication: COVID-19 treatment
     Dosage: TWO DOSES
  2. PROGRAF [Interacting]
     Active Substance: TACROLIMUS
     Indication: Immunosuppressant drug therapy
     Dosage: 1.5 MG PROGRAF THE FIRST EVENING AND 1MG THE SUBSEQUENT MORNING
  3. PROGRAF [Interacting]
     Active Substance: TACROLIMUS
     Dosage: 1.5 MG PROGRAF THE FIRST EVENING AND 1MG THE SUBSEQUENT MORNING
  4. MYCOPHENOLIC ACID [Concomitant]
     Active Substance: MYCOPHENOLIC ACID
     Indication: Immunosuppressant drug therapy
     Dosage: 360 MG, 2X/DAY
  5. PREDNISONE [Concomitant]
     Active Substance: PREDNISONE
     Indication: Immunosuppressant drug therapy
     Dosage: 2.5 MG, DAILY

REACTIONS (3)
  - Drug interaction [Unknown]
  - Drug level increased [Recovering/Resolving]
  - Blood creatinine increased [Unknown]
